FAERS Safety Report 7215175-9 (Version None)
Quarter: 2011Q1

REPORT INFORMATION
  Report Type: 
  Country: None (occurrence: None)
  Receive Date: 20110107
  Receipt Date: 20101014
  Transmission Date: 20110831
  Serious: No
  Sender: FDA-Public Use
  Company Number: A0885027A

PATIENT
  Age: 67 Year
  Sex: Male

DRUGS (3)
  1. LOVAZA [Suspect]
     Dosage: 2MG TWICE PER DAY
     Route: 048
     Dates: start: 20100401, end: 20101003
  2. METOPROLOL [Concomitant]
  3. HYZAAR [Concomitant]

REACTIONS (6)
  - FLATULENCE [None]
  - ABDOMINAL PAIN UPPER [None]
  - DRUG INEFFECTIVE [None]
  - ABDOMINAL DISCOMFORT [None]
  - ABDOMINAL DISTENSION [None]
  - ILL-DEFINED DISORDER [None]
